FAERS Safety Report 8317189-4 (Version None)
Quarter: 2012Q2

REPORT INFORMATION
  Report Type: 
  Country: None (occurrence: None)
  Receive Date: 20120427
  Receipt Date: 20120417
  Transmission Date: 20120825
  Serious: Yes (Hospitalization)
  Sender: FDA-Public Use
  Company Number: DE-ELI_LILLY_AND_COMPANY-DE201204005810

PATIENT
  Sex: Female

DRUGS (5)
  1. CORTISONE ACETATE [Concomitant]
  2. MORPHINE [Concomitant]
  3. FORTEO [Suspect]
     Indication: OSTEOPOROSIS
     Dosage: UNK UNK, QD
     Route: 058
     Dates: start: 20100730
  4. OMEPRAZOLE [Concomitant]
  5. MESALAMINE [Concomitant]

REACTIONS (2)
  - RENAL COLIC [None]
  - CALCULUS URETERIC [None]
